FAERS Safety Report 9199067 (Version 2)
Quarter: 2013Q2

REPORT INFORMATION
  Report Type: Spontaneous
  Country: US (occurrence: US)
  Receive Date: 20130329
  Receipt Date: 20130527
  Transmission Date: 20140414
  Serious: No
  Sender: FDA-Public Use
  Company Number: US-PFIZER INC-2013097336

PATIENT
  Age: 58 Year
  Sex: Female

DRUGS (16)
  1. PROCARDIA XL [Suspect]
     Dosage: 60 MG, 2X/DAY
  2. NIFEDIPINE [Suspect]
     Dosage: 60 MG, 2X/DAY
  3. CLONIDINE [Concomitant]
     Dosage: UNK
     Route: 062
  4. LAMICTAL [Concomitant]
     Dosage: UNK
  5. FIORICET [Concomitant]
     Dosage: UNK
  6. FLEXERIL [Concomitant]
     Dosage: UNK
  7. IMITREX [Concomitant]
     Dosage: UNK
  8. OSCAL [Concomitant]
     Dosage: UNK
  9. VIT D [Concomitant]
     Dosage: UNK
  10. B12 [Concomitant]
     Dosage: UNK
  11. METOPROLOL [Concomitant]
     Dosage: 25 MG, 2X/DAY
  12. NEXIUM [Concomitant]
     Dosage: UNK
  13. CYMBALTA [Concomitant]
     Dosage: UNK
  14. ZYPREXA [Concomitant]
     Dosage: UNK
  15. TRICOR [Concomitant]
     Dosage: UNK
  16. PERCOCET [Concomitant]
     Dosage: UNK

REACTIONS (1)
  - Malaise [Unknown]
